FAERS Safety Report 19997254 (Version 2)
Quarter: 2021Q4

REPORT INFORMATION
  Report Type: Report from Study
  Country: AE (occurrence: AE)
  Receive Date: 20211025
  Receipt Date: 20211125
  Transmission Date: 20220303
  Serious: Yes (Other)
  Sender: FDA-Public Use
  Company Number: AE-BAYER-2021A232215

PATIENT

DRUGS (1)
  1. EYLEA [Suspect]
     Active Substance: AFLIBERCEPT
     Indication: Age-related macular degeneration
     Dosage: UNK (OU-UNKNOWN NUMBER OF INJECTIONS AND THE DATE OF THE LAST ONE)
     Dates: start: 20190923

REACTIONS (1)
  - Eye infection [Recovering/Resolving]

NARRATIVE: CASE EVENT DATE: 20211010
